FAERS Safety Report 4502505-1 (Version None)
Quarter: 2004Q3

REPORT INFORMATION
  Report Type: 
  Country: None (occurrence: None)
  Receive Date: 20040928
  Receipt Date: 20040625
  Transmission Date: 20050211
  Serious: No
  Sender: FDA-Public Use
  Company Number: 04P-163-0266276-00

PATIENT
  Sex: Female
  Weight: 77.1115 kg

DRUGS (5)
  1. HUMIRA [Suspect]
     Indication: ARTHRITIS
     Dosage: 40 MG, SUBCUTANEOUS
     Route: 058
     Dates: start: 20040611
  2. HUMIRA [Suspect]
     Indication: PSORIASIS
     Dosage: 40 MG, SUBCUTANEOUS
     Route: 058
     Dates: start: 20040611
  3. METHOTREXATE SODIUM [Concomitant]
  4. ETODOLAC [Concomitant]
  5. FOLIC ACID [Concomitant]

REACTIONS (1)
  - INJECTION SITE BURNING [None]
